FAERS Safety Report 21501392 (Version 1)
Quarter: 2022Q4

REPORT INFORMATION
  Report Type: Spontaneous
  Country: DK (occurrence: DK)
  Receive Date: 20221025
  Receipt Date: 20221025
  Transmission Date: 20230112
  Serious: Yes (Hospitalization, Other)
  Sender: FDA-Public Use
  Company Number: None

PATIENT
  Age: 72 Year
  Sex: Female

DRUGS (1)
  1. REVLIMID [Suspect]
     Active Substance: LENALIDOMIDE
     Indication: Plasma cell myeloma
     Dosage: DOSAGE: UNKNOWN?STRENGTH: UNKNOWN
     Route: 048
     Dates: start: 20191121

REACTIONS (5)
  - Asthenia [Unknown]
  - Orthostatic hypotension [Unknown]
  - Neuropathy peripheral [Unknown]
  - Sensory disturbance [Unknown]
  - General physical health deterioration [Unknown]

NARRATIVE: CASE EVENT DATE: 20200101
